FAERS Safety Report 9237478 (Version 1)
Quarter: 2013Q2

REPORT INFORMATION
  Report Type: Report from Study
  Country: US (occurrence: US)
  Receive Date: 20130417
  Receipt Date: 20130417
  Transmission Date: 20140414
  Serious: Yes (Other)
  Sender: FDA-Public Use
  Company Number: US-US-EMD SERONO, INC.-7205275

PATIENT
  Age: 29 Year
  Sex: Male
  Weight: 57 kg

DRUGS (1)
  1. REBIF [Suspect]
     Indication: PRODUCT USED FOR UNKNOWN INDICATION
     Route: 058
     Dates: start: 20111128

REACTIONS (8)
  - Suicide attempt [Recovered/Resolved]
  - Depression [Recovered/Resolved]
  - Weight decreased [Unknown]
  - Dizziness [Unknown]
  - Somnolence [Unknown]
  - Injection site bruising [Unknown]
  - Pyrexia [Unknown]
  - Chills [Unknown]
